FAERS Safety Report 10260606 (Version 1)
Quarter: 2014Q2

REPORT INFORMATION
  Report Type: Spontaneous
  Country: CA (occurrence: CA)
  Receive Date: 20140626
  Receipt Date: 20140626
  Transmission Date: 20141212
  Serious: Yes (Hospitalization)
  Sender: FDA-Public Use
  Company Number: CA-ROCHE-1423804

PATIENT
  Age: 56 Year
  Sex: Female

DRUGS (7)
  1. CAPECITABINE [Suspect]
     Indication: PRODUCT USED FOR UNKNOWN INDICATION
     Route: 065
  2. HERCEPTIN [Suspect]
     Indication: PRODUCT USED FOR UNKNOWN INDICATION
     Route: 065
  3. KADCYLA [Suspect]
     Indication: PRODUCT USED FOR UNKNOWN INDICATION
     Dosage: 100MG AND 160MG SINGLE-USE VIALS
     Route: 065
  4. TYKERB [Suspect]
     Indication: PRODUCT USED FOR UNKNOWN INDICATION
     Route: 065
  5. FRAGMIN [Concomitant]
     Route: 065
  6. RANITIDINE [Concomitant]
  7. ZOMETA [Concomitant]
     Route: 065

REACTIONS (3)
  - Pulmonary oedema [Unknown]
  - Cough [Unknown]
  - Weight decreased [Unknown]
